FAERS Safety Report 4377199-9 (Version None)
Quarter: 2004Q2

REPORT INFORMATION
  Report Type: 
  Country: None (occurrence: None)
  Receive Date: 20040609
  Receipt Date: 20040219
  Transmission Date: 20050107
  Serious: No
  Sender: FDA-Public Use
  Company Number: 2004200673US

PATIENT
  Sex: 0

DRUGS (1)
  1. BEXTRA [Suspect]
     Dosage: UNK
     Route: 065

REACTIONS (1)
  - ADVERSE EVENT [None]
